FAERS Safety Report 5982191-4 (Version None)
Quarter: 2008Q4

REPORT INFORMATION
  Report Type: 
  Country: None (occurrence: None)
  Receive Date: 20081208
  Receipt Date: 20081201
  Transmission Date: 20090506
  Serious: No
  Sender: FDA-Public Use
  Company Number: US-JNJFOC-20081200692

PATIENT
  Sex: Female
  Weight: 82.56 kg

DRUGS (16)
  1. FENTANYL TRANSDERMAL SYSTEM [Suspect]
     Dosage: 75 MCG EVERY 48-72 HOURS AS NEEDED
     Route: 062
  2. FENTANYL TRANSDERMAL SYSTEM [Suspect]
     Route: 062
  3. FENTANYL TRANSDERMAL SYSTEM [Suspect]
     Indication: ARTHRITIS
     Route: 062
  4. MYLAN [Suspect]
     Indication: DRUG USE FOR UNKNOWN INDICATION
     Route: 062
  5. SYNTHROID [Concomitant]
     Indication: DRUG USE FOR UNKNOWN INDICATION
     Route: 048
  6. CLONAZEPAM [Concomitant]
     Indication: DRUG USE FOR UNKNOWN INDICATION
     Route: 048
  7. VERAPAMIL EXTENDED-RELEASE [Concomitant]
     Indication: DRUG USE FOR UNKNOWN INDICATION
     Route: 048
  8. TRAMADOL HCL [Concomitant]
     Indication: DRUG USE FOR UNKNOWN INDICATION
     Route: 048
  9. LIPITOR [Concomitant]
     Indication: DRUG USE FOR UNKNOWN INDICATION
     Route: 048
  10. LEXAPRO [Concomitant]
     Indication: DEPRESSION
     Route: 048
  11. PLAQUENIL [Concomitant]
     Indication: DRUG USE FOR UNKNOWN INDICATION
     Route: 048
  12. LISINOPRIL [Concomitant]
     Indication: DRUG USE FOR UNKNOWN INDICATION
     Route: 048
  13. LASIX [Concomitant]
     Indication: DRUG USE FOR UNKNOWN INDICATION
     Route: 048
  14. TOPROL-XL [Concomitant]
     Indication: DRUG USE FOR UNKNOWN INDICATION
     Route: 048
  15. DIOVAN [Concomitant]
     Indication: DRUG USE FOR UNKNOWN INDICATION
     Route: 048
  16. NOVOLOG [Concomitant]
     Indication: DIABETES MELLITUS
     Dosage: 32 UNITS
     Route: 058

REACTIONS (4)
  - DRUG INEFFECTIVE [None]
  - DRUG PRESCRIBING ERROR [None]
  - PAIN [None]
  - PRODUCT QUALITY ISSUE [None]
